FAERS Safety Report 15723248 (Version 1)
Quarter: 2018Q4

REPORT INFORMATION
  Report Type: Spontaneous
  Country: DZ (occurrence: DZ)
  Receive Date: 20181214
  Receipt Date: 20181214
  Transmission Date: 20190205
  Serious: Yes (Other)
  Sender: FDA-Public Use
  Company Number: DZ-BAYER-2018-232440

PATIENT
  Age: 66 Year
  Sex: Female

DRUGS (1)
  1. STIVARGA [Suspect]
     Active Substance: REGORAFENIB
     Indication: COLORECTAL CANCER
     Dosage: UNK

REACTIONS (3)
  - Asthenia [None]
  - Colorectal cancer [Not Recovered/Not Resolved]
  - Hypertension [None]

NARRATIVE: CASE EVENT DATE: 20181205
